FAERS Safety Report 9516375 (Version 2)
Quarter: 2013Q3

REPORT INFORMATION
  Report Type: Spontaneous
  Country: AU (occurrence: None)
  Receive Date: 20130909
  Receipt Date: 20130918
  Transmission Date: 20140515
  Serious: Yes (Hospitalization, Other)
  Sender: FDA-Public Use
  Company Number: AUR-APL-2013-07372

PATIENT
  Age: 50 Year
  Sex: Male

DRUGS (7)
  1. CIPROFLOXACIN [Suspect]
     Indication: PRODUCT USED FOR UNKNOWN INDICATION
     Dosage: (1500 MG, 1 D)
     Route: 048
     Dates: start: 20121218, end: 20121221
  2. QUETIAPINE [Suspect]
     Indication: PRODUCT USED FOR UNKNOWN INDICATION
     Dosage: (400 MG, 1 D)
     Route: 048
     Dates: end: 20121224
  3. CARBAMAZEPINE [Concomitant]
  4. CLINDAMYCIN HYDROCHLORIDE [Concomitant]
  5. DIAZEPAM [Concomitant]
  6. SALBUTAMOL [Concomitant]
  7. VALPROATE SODIUM [Concomitant]

REACTIONS (3)
  - Long QT syndrome [None]
  - Sinus bradycardia [None]
  - Syncope [None]
